FAERS Safety Report 21186990 (Version 1)
Quarter: 2022Q3

REPORT INFORMATION
  Report Type: Spontaneous
  Country: US (occurrence: US)
  Receive Date: 20220808
  Receipt Date: 20220808
  Transmission Date: 20221026
  Serious: Yes (Hospitalization)
  Sender: FDA-Public Use
  Company Number: US-PFIZER INC-202201033533

PATIENT
  Age: 28 Year
  Sex: Female
  Weight: 107.14 kg

DRUGS (3)
  1. VANCOMYCIN HYDROCHLORIDE [Suspect]
     Active Substance: VANCOMYCIN HYDROCHLORIDE
     Indication: Clostridium difficile infection
     Dosage: UNK(4 TIMES A DAY FOR 10 DAYS)
  2. CEFTIN [Suspect]
     Active Substance: CEFUROXIME AXETIL
     Indication: Clostridium difficile infection
     Dosage: 200 MG
  3. CEFTIN [Suspect]
     Active Substance: CEFUROXIME AXETIL
     Indication: Ingrowing nail

REACTIONS (3)
  - Clostridium difficile infection [Unknown]
  - Rebound effect [Unknown]
  - COVID-19 [Recovered/Resolved]

NARRATIVE: CASE EVENT DATE: 20220101
